FAERS Safety Report 10660877 (Version 1)
Quarter: 2014Q4

REPORT INFORMATION
  Report Type: Spontaneous
  Country: US (occurrence: US)
  Receive Date: 20141218
  Receipt Date: 20141218
  Transmission Date: 20150529
  Serious: Yes (Hospitalization, Other)
  Sender: FDA-Public Use
  Company Number: US-AMGEN-USASP2014097113

PATIENT
  Age: 75 Year
  Sex: Male

DRUGS (6)
  1. CYCLOPHOSPHAMIDE. [Concomitant]
     Active Substance: CYCLOPHOSPHAMIDE
     Dosage: UNK
  2. CALCITONIN [Concomitant]
     Active Substance: CALCITONIN
     Dosage: UNK
  3. DEXAMETHASONE. [Concomitant]
     Active Substance: DEXAMETHASONE
     Dosage: UNK
  4. XGEVA [Suspect]
     Active Substance: DENOSUMAB
     Indication: HYPERCALCAEMIA OF MALIGNANCY
     Dosage: 20 MG, UNK
     Route: 065
  5. BORTEZOMIB [Concomitant]
     Active Substance: BORTEZOMIB
     Dosage: UNK
  6. THALIDOMIDE [Concomitant]
     Active Substance: THALIDOMIDE
     Dosage: UNK

REACTIONS (3)
  - Central nervous system haemorrhage [Unknown]
  - Hypocalcaemia [Recovered/Resolved]
  - Sepsis [Unknown]
